FAERS Safety Report 9919216 (Version 1)
Quarter: 2014Q1

REPORT INFORMATION
  Report Type: Spontaneous
  Country: US (occurrence: US)
  Receive Date: 20140224
  Receipt Date: 20140224
  Transmission Date: 20141002
  Serious: No
  Sender: FDA-Public Use
  Company Number: US-JNJFOC-20140206175

PATIENT
  Sex: Male

DRUGS (2)
  1. INVEGA SUSTENNA [Suspect]
     Indication: SCHIZOPHRENIA
     Dosage: 234 MG + 117 MG
     Route: 030
  2. INVEGA SUSTENNA [Suspect]
     Indication: SCHIZOPHRENIA
     Dosage: 117 MG IN ADDITION TO 234 MG
     Route: 030

REACTIONS (1)
  - Drug ineffective [Unknown]
